FAERS Safety Report 8194209 (Version 2)
Quarter: 2013Q3

REPORT INFORMATION
  Report Type: Spontaneous
  Country: US (occurrence: US)
  Receive Date: 20111022
  Receipt Date: 20130802
  Transmission Date: 20140515
  Serious: Yes (Other)
  Sender: FDA-Public Use
  Company Number: US-BAYER-2011-098206

PATIENT
  Age: 40 Year
  Sex: Female
  Weight: 74.83 kg

DRUGS (11)
  1. OCELLA [Suspect]
     Dosage: UNK, QD
     Route: 048
     Dates: start: 20080923, end: 20091013
  2. OCELLA [Suspect]
     Dosage: UNK
     Dates: start: 20010623, end: 20110716
  3. YASMIN [Suspect]
     Dosage: UNK
     Dates: start: 20010623, end: 20110716
  4. YASMIN [Suspect]
     Dosage: UNK
     Dates: start: 20080923, end: 20091013
  5. YAZ [Suspect]
  6. AMBIEN [Concomitant]
  7. WELLBUTRIN XL [Concomitant]
  8. ZOLPIDEM [Concomitant]
  9. HYDROCODONE W/APAP [Concomitant]
  10. ALPRAZOLAM [Concomitant]
  11. XANAX [Concomitant]

REACTIONS (4)
  - Cholelithiasis [None]
  - Cholecystitis chronic [None]
  - Injury [None]
  - Abdominal pain [None]
